FAERS Safety Report 9918642 (Version 3)
Quarter: 2014Q1

REPORT INFORMATION
  Report Type: Spontaneous
  Country: GB (occurrence: GB)
  Receive Date: 20140224
  Receipt Date: 20140325
  Transmission Date: 20141002
  Serious: Yes (Other)
  Sender: FDA-Public Use
  Company Number: GB-ROCHE-1340973

PATIENT
  Age: 31 Year
  Sex: Female
  Weight: 61.2 kg

DRUGS (5)
  1. ROACTEMRA [Suspect]
     Indication: JUVENILE IDIOPATHIC ARTHRITIS
     Dosage: TOTAL MONTHLY DOSE (MG) = 8X60X2 = 960MG (PATIENT WEIGHT IN 2009 WAS ROUGHLY 60KG)?4 MOST RECENT INF
     Route: 042
     Dates: start: 20080721
  2. ROACTEMRA [Suspect]
     Route: 042
     Dates: start: 20110118, end: 201101
  3. ROACTEMRA [Suspect]
     Route: 042
     Dates: start: 201105, end: 20130103
  4. IBUPROFEN [Concomitant]
     Route: 048
     Dates: start: 201206
  5. LANSOPRAZOLE [Concomitant]
     Route: 048
     Dates: start: 201206

REACTIONS (6)
  - Vitiligo [Not Recovered/Not Resolved]
  - Melanocytic naevus [Not Recovered/Not Resolved]
  - Subcutaneous abscess [Recovered/Resolved]
  - Skin hyperpigmentation [Unknown]
  - Skin hypopigmentation [Unknown]
  - Eczema nummular [Recovered/Resolved]
